FAERS Safety Report 14670774 (Version 2)
Quarter: 2018Q2

REPORT INFORMATION
  Report Type: Spontaneous
  Country: CN (occurrence: CN)
  Receive Date: 20180322
  Receipt Date: 20180419
  Transmission Date: 20180711
  Serious: Yes (Other)
  Sender: FDA-Public Use
  Company Number: CN-009507513-1803CHN005428

PATIENT
  Age: 90 Year
  Sex: Female

DRUGS (12)
  1. TORSEMIDE. [Concomitant]
     Active Substance: TORSEMIDE
  2. LENTINAN [Concomitant]
     Active Substance: LENTINAN
     Indication: NEOPLASM MALIGNANT
  3. CARBOHYDRATES (UNSPECIFIED) (+) FAT (UNSPECIFIED) (+) MINERALS (UNSPEC [Concomitant]
     Active Substance: DIETARY SUPPLEMENT
  4. AMLODIPINE BESYLATE. [Concomitant]
     Active Substance: AMLODIPINE BESYLATE
     Indication: HYPERTENSION
  5. AMBROXOL [Concomitant]
     Active Substance: AMBROXOL
     Indication: PRODUCTIVE COUGH
  6. TIENAM [Suspect]
     Active Substance: CILASTATIN SODIUM\IMIPENEM
     Dosage: IMIPENEM 500 MG AND CILASTATIN 500 MG/UNIT, 0.5 G Q8H
     Route: 041
     Dates: start: 20160818, end: 201608
  7. ATORVASTATIN CALCIUM. [Concomitant]
     Active Substance: ATORVASTATIN CALCIUM
     Indication: LIPIDS INCREASED
  8. ISOSORBIDE MONONITRATE. [Concomitant]
     Active Substance: ISOSORBIDE MONONITRATE
     Indication: CORONARY ARTERY DILATATION
  9. ATORVASTATIN CALCIUM. [Concomitant]
     Active Substance: ATORVASTATIN CALCIUM
     Indication: HYPERCHOLESTEROLAEMIA
  10. GANGLIOSIDES (UNSPECIFIED) [Concomitant]
     Indication: PROPHYLAXIS
  11. INSULIN [Concomitant]
     Active Substance: INSULIN NOS
  12. SILYMARIN [Concomitant]
     Active Substance: DIETARY SUPPLEMENT\HERBALS\MILK THISTLE
     Dosage: 0.4 G, TID
     Dates: start: 20160829

REACTIONS (1)
  - Drug-induced liver injury [Recovered/Resolved]

NARRATIVE: CASE EVENT DATE: 201608
